FAERS Safety Report 18177034 (Version 2)
Quarter: 2022Q1

REPORT INFORMATION
  Report Type: Spontaneous
  Country: US (occurrence: US)
  Receive Date: 20200821
  Receipt Date: 20220210
  Transmission Date: 20220423
  Serious: Yes (Other)
  Sender: FDA-Public Use
  Company Number: US-SAARTEMIS-SAC202008180308

PATIENT
  Age: 59 Year
  Sex: Female

DRUGS (1)
  1. ZANTAC [Suspect]
     Active Substance: RANITIDINE HYDROCHLORIDE
     Indication: Dyspepsia
     Dosage: 150 MG, QD
     Dates: start: 199501, end: 201101

REACTIONS (4)
  - Bladder cancer stage III [Unknown]
  - Gastric cancer stage III [Unknown]
  - Small intestine carcinoma stage III [Unknown]
  - Soft tissue sarcoma [Unknown]

NARRATIVE: CASE EVENT DATE: 20171001
